FAERS Safety Report 6220413-5 (Version None)
Quarter: 2009Q2

REPORT INFORMATION
  Report Type: 
  Country: None (occurrence: None)
  Receive Date: 20090610
  Receipt Date: 20090529
  Transmission Date: 20091009
  Serious: Yes (Hospitalization)
  Sender: FDA-Public Use
  Company Number: CZ-PFIZER INC-2009198114

PATIENT
  Age: 64 Year

DRUGS (5)
  1. SUNITINIB MALATE [Suspect]
     Indication: RENAL CANCER
     Dosage: 50 MG, 1X/DAY
     Route: 048
     Dates: start: 20081208, end: 20090316
  2. PRESTARIUM [Concomitant]
     Dosage: UNK
     Route: 048
     Dates: start: 20090108
  3. GODASAL [Concomitant]
     Dosage: 100 MG, UNK
     Route: 048
  4. ESSENTIALE FORTE [Concomitant]
     Route: 048
  5. ATROVENT [Concomitant]

REACTIONS (1)
  - DERMATITIS EXFOLIATIVE [None]
